FAERS Safety Report 9285246 (Version 3)
Quarter: 2013Q3

REPORT INFORMATION
  Report Type: Spontaneous
  Country: GB (occurrence: GB)
  Receive Date: 20130513
  Receipt Date: 20130708
  Transmission Date: 20140515
  Serious: Yes (Hospitalization, Other)
  Sender: FDA-Public Use
  Company Number: GB-JNJFOC-20130503022

PATIENT
  Age: 69 Year
  Sex: Male

DRUGS (8)
  1. REMICADE [Suspect]
     Indication: CROHN^S DISEASE
     Route: 042
     Dates: start: 201304
  2. REMICADE [Suspect]
     Indication: CROHN^S DISEASE
     Route: 042
     Dates: start: 201111
  3. PEN V [Concomitant]
     Route: 065
  4. PARACETOL [Concomitant]
     Route: 065
  5. AMIODARONE [Concomitant]
     Route: 065
  6. SIMVASTATIN [Concomitant]
     Route: 065
  7. SALBUTAMOL [Concomitant]
     Route: 065
  8. HYDROXYCOBALAMINE [Concomitant]
     Route: 065

REACTIONS (4)
  - Splenic rupture [Unknown]
  - Chest pain [Unknown]
  - Fall [Unknown]
  - Syncope [Unknown]
